FAERS Safety Report 6452582-6 (Version None)
Quarter: 2009Q4

REPORT INFORMATION
  Report Type: 
  Country: None (occurrence: None)
  Receive Date: 20091124
  Receipt Date: 20091117
  Transmission Date: 20100525
  Serious: Yes (Death, Hospitalization, Other)
  Sender: FDA-Public Use
  Company Number: GB-RANBAXY-2009RR-29180

PATIENT
  Age: 72 Year
  Sex: Male

DRUGS (10)
  1. SERTRALINE HCL [Suspect]
     Indication: DEPRESSION
     Dosage: 50 MG, UNK
  2. AMANTADINE [Suspect]
     Indication: PARKINSON'S DISEASE
     Dosage: 100 MG, QD
  3. AMANTADINE [Suspect]
     Dosage: 200 MG, BID
  4. BACLOFEN [Suspect]
     Dosage: 5 MG, BID
  5. BACLOFEN [Suspect]
     Dosage: 10 MG, BID
  6. CO-BENELDOPA [Suspect]
     Indication: PARKINSON'S DISEASE
     Dosage: 12.5 MG/50 MG
  7. METOCLOPRAMIDE [Concomitant]
     Dosage: 10 MG, BID
     Route: 047
  8. LANSOPRAZOLE [Concomitant]
     Dosage: 30 MG, UNK
  9. DIAMORPHINE [Concomitant]
  10. MIDAZOLAM HCL [Concomitant]

REACTIONS (9)
  - CEREBROVASCULAR ACCIDENT [None]
  - CIRCULATORY COLLAPSE [None]
  - DEATH [None]
  - DEPRESSION [None]
  - HICCUPS [None]
  - HYPONATRAEMIA [None]
  - INSOMNIA [None]
  - ORTHOSTATIC HYPOTENSION [None]
  - SOCIAL AVOIDANT BEHAVIOUR [None]
